FAERS Safety Report 5900739-2 (Version None)
Quarter: 2008Q3

REPORT INFORMATION
  Report Type: 
  Country: None (occurrence: None)
  Receive Date: 20080929
  Receipt Date: 20080917
  Transmission Date: 20090109
  Serious: Yes (Other)
  Sender: FDA-Public Use
  Company Number: BR-RANBAXY-2008R5-18064

PATIENT

DRUGS (2)
  1. AMOXICILLIN + CLAVULANATE POTASSIUM [Suspect]
     Indication: SINUSITIS
     Dosage: 62.55 MG, UNK
     Route: 048
     Dates: start: 20080913
  2. DYPIRONE [Concomitant]
     Indication: DRUG USE FOR UNKNOWN INDICATION

REACTIONS (2)
  - EPISTAXIS [None]
  - EYE SWELLING [None]
